FAERS Safety Report 12930061 (Version 1)
Quarter: 2016Q4

REPORT INFORMATION
  Report Type: Spontaneous
  Country: US (occurrence: US)
  Receive Date: 20161110
  Receipt Date: 20161110
  Transmission Date: 20170207
  Serious: Yes (Hospitalization)
  Sender: FDA-Public Use
  Company Number: None

PATIENT
  Age: 43 Year
  Sex: Female
  Weight: 56.7 kg

DRUGS (1)
  1. ERIBULIN MESYLATE [Suspect]
     Active Substance: ERIBULIN MESYLATE
     Indication: CERVIX CARCINOMA
     Dosage: ?          OTHER FREQUENCY:D1 D8 Q 21 DAYS;?
     Route: 042
     Dates: start: 20160929, end: 20161026

REACTIONS (6)
  - Cerebrovascular arteriovenous malformation [None]
  - Peripheral swelling [None]
  - Anaemia of chronic disease [None]
  - Pelvic pain [None]
  - Deep vein thrombosis [None]
  - Cerebral infarction [None]

NARRATIVE: CASE EVENT DATE: 20161108
